FAERS Safety Report 8456372-4 (Version None)
Quarter: 2012Q2

REPORT INFORMATION
  Report Type: 
  Country: None (occurrence: None)
  Receive Date: 20120621
  Receipt Date: 20120615
  Transmission Date: 20120825
  Serious: Yes (Other)
  Sender: FDA-Public Use
  Company Number: ES-GLAXOSMITHKLINE-B0809172A

PATIENT
  Age: 83 Year
  Sex: Female

DRUGS (1)
  1. VALACICLOVIR [Suspect]
     Indication: HERPES ZOSTER
     Dosage: 1G TWICE PER DAY
     Route: 048

REACTIONS (2)
  - NEUROTOXICITY [None]
  - DYSARTHRIA [None]
